FAERS Safety Report 4301015-4 (Version None)
Quarter: 2004Q1

REPORT INFORMATION
  Report Type: 
  Country: None (occurrence: None)
  Receive Date: 20040219
  Receipt Date: 20040210
  Transmission Date: 20041129
  Serious: Yes (Other)
  Sender: FDA-Public Use
  Company Number: 2003-08-0987

PATIENT
  Age: 27 Year
  Sex: Female

DRUGS (4)
  1. QVAR AUTOHALER HFA (BECLOMETHASONE DIPROPIONATE) ORAL AEROSOL ^LIKE VA [Suspect]
     Indication: ASTHMA
     Dosage: 200 MCG QD ORAL AER INH
     Dates: start: 20030529
  2. THEOPHYLLINE [Concomitant]
  3. ALESION (EPINASTINE HYDROCHLORIDE) [Concomitant]
  4. BEROTEC PRN INHALATION [Concomitant]

REACTIONS (1)
  - MENORRHAGIA [None]
